FAERS Safety Report 5298422-2 (Version None)
Quarter: 2007Q2

REPORT INFORMATION
  Report Type: 
  Country: None (occurrence: None)
  Receive Date: 20070416
  Receipt Date: 20070407
  Transmission Date: 20071010
  Serious: Yes (Other)
  Sender: FDA-Public Use
  Company Number: US-PFIZER INC-2007028528

PATIENT
  Sex: Female
  Weight: 63.5 kg

DRUGS (4)
  1. CHANTIX [Suspect]
     Indication: EX-SMOKER
     Route: 048
  2. CHLORAL HYDRATE [Concomitant]
     Indication: INSOMNIA
  3. AMBIEN [Concomitant]
     Indication: INSOMNIA
  4. ALL OTHER THERAPEUTIC PRODUCTS [Concomitant]

REACTIONS (3)
  - HALLUCINATION [None]
  - LETHARGY [None]
  - SLEEP DISORDER [None]
